FAERS Safety Report 22052311 (Version 1)
Quarter: 2023Q1

REPORT INFORMATION
  Report Type: Spontaneous
  Country: FR (occurrence: FR)
  Receive Date: 20230302
  Receipt Date: 20230302
  Transmission Date: 20230418
  Serious: Yes (Hospitalization, Other)
  Sender: FDA-Public Use
  Company Number: None

PATIENT
  Age: 64 Year
  Sex: Male

DRUGS (2)
  1. TEMODAL [Suspect]
     Active Substance: TEMOZOLOMIDE
     Indication: Glioblastoma
     Dosage: NOT SPECIFIED
     Route: 048
     Dates: start: 20221209
  2. NICOPATCH [Suspect]
     Active Substance: NICOTINE
     Indication: Ex-tobacco user
     Dosage: 14 MG, Q24H
     Route: 062
     Dates: start: 20221030

REACTIONS (4)
  - Conjunctivitis [Recovering/Resolving]
  - Application site eczema [Not Recovered/Not Resolved]
  - Rash maculo-papular [Recovering/Resolving]
  - Oral mucosa erosion [Not Recovered/Not Resolved]

NARRATIVE: CASE EVENT DATE: 20221225
